FAERS Safety Report 9099611 (Version 3)
Quarter: 2013Q2

REPORT INFORMATION
  Report Type: Spontaneous
  Country: JP (occurrence: JP)
  Receive Date: 20130214
  Receipt Date: 20130429
  Transmission Date: 20140414
  Serious: Yes (Hospitalization)
  Sender: FDA-Public Use
  Company Number: PHHY2013JP013699

PATIENT
  Age: 83 Year
  Sex: Male

DRUGS (3)
  1. EXELON PATCH [Suspect]
     Indication: DEMENTIA ALZHEIMER^S TYPE
     Dosage: UNK UKN, UNK
     Route: 062
  2. EXELON PATCH [Suspect]
     Dosage: 13.5 MG, DAILY
     Route: 062
  3. EXELON PATCH [Suspect]
     Dosage: 13.5 MG, DAILY
     Route: 062

REACTIONS (1)
  - Pneumonia [Recovered/Resolved]
